FAERS Safety Report 9720795 (Version 1)
Quarter: 2013Q4

REPORT INFORMATION
  Report Type: Spontaneous
  Country: BR (occurrence: BR)
  Receive Date: 20131129
  Receipt Date: 20131129
  Transmission Date: 20140711
  Serious: Yes (Other)
  Sender: FDA-Public Use
  Company Number: BR-AMGEN-BRASP2013084043

PATIENT
  Age: 76 Year
  Sex: Female
  Weight: 70 kg

DRUGS (5)
  1. ENBREL [Suspect]
     Indication: RHEUMATOID ARTHRITIS
     Dosage: 50 MG, 1X/WEEK
     Route: 058
     Dates: start: 201310
  2. ATENOLOL [Concomitant]
     Dosage: 50 MG, 1X/DAY
     Route: 048
  3. GLIFAGE [Concomitant]
     Dosage: 500 MG, 2X/DAY
     Route: 048
  4. MICARDIS HCT [Concomitant]
     Dosage: [TELMISARTAN 80 MG] / [HYDROCHLOROTHIAZIDE 12.5 MG] (ONE TABLET), 1X/DAY
     Route: 048
  5. SIMVASTATIN [Concomitant]
     Dosage: UNKNOWN

REACTIONS (4)
  - Head discomfort [Unknown]
  - Facial pain [Unknown]
  - Pneumonia [Unknown]
  - Sinusitis [Unknown]
